FAERS Safety Report 9694660 (Version 3)
Quarter: 2014Q1

REPORT INFORMATION
  Report Type: Report from Study
  Country: CA (occurrence: CA)
  Receive Date: 20131119
  Receipt Date: 20140124
  Transmission Date: 20141002
  Serious: Yes (Hospitalization)
  Sender: FDA-Public Use
  Company Number: CA-ROCHE-1223948

PATIENT
  Age: 17 Year
  Sex: Female
  Weight: 52 kg

DRUGS (1)
  1. PULMOZYME [Suspect]
     Indication: CYSTIC FIBROSIS
     Route: 055
     Dates: start: 20130430, end: 201307

REACTIONS (5)
  - Dyspnoea [Unknown]
  - Lung infection [Unknown]
  - Pregnancy [Unknown]
  - No adverse event [Unknown]
  - Drug ineffective [Unknown]
